FAERS Safety Report 25957409 (Version 2)
Quarter: 2025Q4

REPORT INFORMATION
  Report Type: Spontaneous
  Country: US (occurrence: US)
  Receive Date: 20251024
  Receipt Date: 20251030
  Transmission Date: 20260118
  Serious: No
  Sender: BAYER HEALTHCARE PHARMACEUTICALS INC.
  Company Number: US-BAYER-2025A140765

PATIENT
  Age: 36 Year
  Sex: Female

DRUGS (2)
  1. BETASERON [Suspect]
     Active Substance: INTERFERON BETA-1B
     Dosage: UNK
  2. DEVICE [Suspect]
     Active Substance: DEVICE
     Dosage: UNK

REACTIONS (4)
  - Drug dose omission by device [None]
  - Device alarm issue [None]
  - Device power source issue [None]
  - Expired device used [None]

NARRATIVE: CASE EVENT DATE: 20251023
